FAERS Safety Report 6621503-5 (Version None)
Quarter: 2010Q1

REPORT INFORMATION
  Report Type: 
  Country: None (occurrence: None)
  Receive Date: 20100309
  Receipt Date: 20100302
  Transmission Date: 20100710
  Serious: Yes (Other)
  Sender: FDA-Public Use
  Company Number: US-BAXTER-2010BH002836

PATIENT
  Age: 58 Year
  Sex: Male

DRUGS (1)
  1. DIANEAL [Suspect]
     Indication: PERITONEAL DIALYSIS
     Route: 033

REACTIONS (8)
  - ABDOMINAL PAIN UPPER [None]
  - CHILLS [None]
  - CONSTIPATION [None]
  - INFECTION [None]
  - MUSCLE SPASMS [None]
  - PAIN [None]
  - PYREXIA [None]
  - VOMITING [None]
